FAERS Safety Report 11009060 (Version 1)
Quarter: 2015Q2

REPORT INFORMATION
  Report Type: Spontaneous
  Country: ES (occurrence: None)
  Receive Date: 20150408
  Receipt Date: 20150408
  Transmission Date: 20150821
  Serious: Yes (Hospitalization)
  Sender: FDA-Public Use
  Company Number: 2015HINLT0320

PATIENT
  Age: 54 Year
  Sex: Male

DRUGS (5)
  1. CLONAZEPAM (CLONAZEPAM) [Concomitant]
     Active Substance: CLONAZEPAM
  2. QUETIAPINE [Concomitant]
     Active Substance: QUETIAPINE
  3. CARBAMAZEPINE. [Concomitant]
     Active Substance: CARBAMAZEPINE
  4. LITHIUM. [Suspect]
     Active Substance: LITHIUM
     Indication: MANIA
     Dosage: QD, UNKNOWN
  5. RISPERIODONE [Concomitant]
     Active Substance: RISPERIDONE

REACTIONS (7)
  - Toxicity to various agents [None]
  - Cognitive disorder [None]
  - Encephalopathy [None]
  - Faecal incontinence [None]
  - Antipsychotic drug level above therapeutic [None]
  - Dementia [None]
  - Dysphagia [None]
